FAERS Safety Report 9894456 (Version 1)
Quarter: 2014Q1

REPORT INFORMATION
  Report Type: Report from Study
  Country: US (occurrence: US)
  Receive Date: 20140213
  Receipt Date: 20140213
  Transmission Date: 20141002
  Serious: Yes (Death, Hospitalization, Other)
  Sender: FDA-Public Use
  Company Number: US-TEVA-462575USA

PATIENT
  Sex: Female

DRUGS (1)
  1. CLOZAPINE [Suspect]
     Indication: SCHIZOPHRENIA
     Route: 048

REACTIONS (4)
  - Chronic obstructive pulmonary disease [Fatal]
  - Myocardial infarction [Fatal]
  - Respiratory failure [Fatal]
  - Loss of consciousness [Not Recovered/Not Resolved]
